FAERS Safety Report 10023367 (Version 1)
Quarter: 2014Q1

REPORT INFORMATION
  Report Type: Spontaneous
  Country: US (occurrence: US)
  Receive Date: 20140320
  Receipt Date: 20140320
  Transmission Date: 20141002
  Serious: No
  Sender: FDA-Public Use
  Company Number: US-TEVA-392126USA

PATIENT
  Sex: 0

DRUGS (1)
  1. NOREPINEPHRINE [Suspect]
     Dosage: 250 ML AT VARYING RATE
     Route: 041

REACTIONS (1)
  - Blood pressure abnormal [Unknown]
